FAERS Safety Report 4569633-6 (Version None)
Quarter: 2005Q1

REPORT INFORMATION
  Report Type: 
  Country: None (occurrence: None)
  Receive Date: 20050201
  Receipt Date: 20050118
  Transmission Date: 20050727
  Serious: Yes (Hospitalization)
  Sender: FDA-Public Use
  Company Number: 2005-BP-00782AU

PATIENT
  Age: 72 Year
  Sex: Male

DRUGS (5)
  1. MICARDIS HCT [Suspect]
     Dosage: PO
     Route: 048
     Dates: start: 20040531, end: 20040819
  2. ADALAT (NIFEDIPINE) (TAD) [Concomitant]
  3. LIPITOR [Concomitant]
  4. MIXTARD 30/70 (SPI) [Concomitant]
  5. MONOPLUS (MONOPLUS) (TA) [Concomitant]

REACTIONS (5)
  - CHILLS [None]
  - CIRCULATORY COLLAPSE [None]
  - COUGH [None]
  - HYPOTENSION [None]
  - PYREXIA [None]
